FAERS Safety Report 4633825-8 (Version None)
Quarter: 2005Q2

REPORT INFORMATION
  Report Type: 
  Country: None (occurrence: None)
  Receive Date: 20050413
  Receipt Date: 20050307
  Transmission Date: 20051028
  Serious: Yes (Disabling, Other)
  Sender: FDA-Public Use
  Company Number: 200512043GDDC

PATIENT
  Age: 19 Year
  Sex: Male
  Weight: 67.5 kg

DRUGS (10)
  1. DOCETAXEL [Suspect]
     Indication: CONNECTIVE TISSUE DISORDER
     Route: 042
     Dates: start: 20041125, end: 20050106
  2. DOCETAXEL [Suspect]
     Indication: METASTASIS
     Route: 042
     Dates: start: 20041125, end: 20050106
  3. DOCETAXEL [Suspect]
     Indication: NEOPLASM MALIGNANT
     Route: 042
     Dates: start: 20041125, end: 20050106
  4. CISPLATIN [Suspect]
     Indication: CONNECTIVE TISSUE DISORDER
     Route: 042
     Dates: start: 20041125, end: 20050216
  5. CISPLATIN [Suspect]
     Indication: METASTASIS
     Route: 042
     Dates: start: 20041125, end: 20050216
  6. CISPLATIN [Suspect]
     Indication: NEOPLASM MALIGNANT
     Route: 042
     Dates: start: 20041125, end: 20050216
  7. RADIOTHERAPY [Suspect]
     Indication: NEOPLASM MALIGNANT
     Dosage: DOSE: 2 GY DAILY FRACTIONS
     Dates: start: 20050124, end: 20050311
  8. DURAGESIC-100 [Suspect]
     Indication: PAIN
     Dates: start: 20050211, end: 20050304
  9. TRAMADOL HCL [Suspect]
     Indication: PAIN
     Route: 048
     Dates: start: 20050207
  10. DEXAMETHASONE [Concomitant]
     Indication: PREMEDICATION

REACTIONS (8)
  - CRANIAL NERVE DISORDER [None]
  - DIPLOPIA [None]
  - INFLAMMATION [None]
  - MUCOSAL INFLAMMATION [None]
  - PAIN [None]
  - PAPILLOEDEMA [None]
  - PERFORMANCE STATUS DECREASED [None]
  - PUPILLARY DISORDER [None]
